FAERS Safety Report 7820565-7 (Version None)
Quarter: 2011Q4

REPORT INFORMATION
  Report Type: 
  Country: None (occurrence: None)
  Receive Date: 20111018
  Receipt Date: 20111014
  Transmission Date: 20120403
  Serious: Yes (Death)
  Sender: FDA-Public Use
  Company Number: PHHY2011BR91237

PATIENT
  Sex: Female

DRUGS (2)
  1. DIOVAN HCT [Suspect]
     Dosage: 80 MG VALS/ 12.5 MG HCT
  2. TEGRETOL-XR [Suspect]
     Dosage: 400 MG, UNK

REACTIONS (1)
  - DEATH [None]
